FAERS Safety Report 9895506 (Version 2)
Quarter: 2014Q1

REPORT INFORMATION
  Report Type: Spontaneous
  Country: US (occurrence: US)
  Receive Date: 20140213
  Receipt Date: 20140213
  Transmission Date: 20141002
  Serious: No
  Sender: FDA-Public Use
  Company Number: US-BRISTOL-MYERS SQUIBB COMPANY-19426675

PATIENT
  Age: 34 Year
  Sex: Female
  Weight: 65.76 kg

DRUGS (3)
  1. ORENCIA [Suspect]
     Indication: PSORIATIC ARTHROPATHY
     Route: 042
  2. LEXAPRO [Concomitant]
     Dosage: TAB
  3. ALEVE [Concomitant]
     Dosage: CAP

REACTIONS (2)
  - Drug ineffective [Unknown]
  - Off label use [Unknown]
